FAERS Safety Report 11707566 (Version 2)
Quarter: 2015Q4

REPORT INFORMATION
  Report Type: Spontaneous
  Country: US (occurrence: US)
  Receive Date: 20151104
  Receipt Date: 20151104
  Transmission Date: 20160304
  Serious: No
  Sender: FDA-Public Use
  Company Number: US-ELI_LILLY_AND_COMPANY-US201103008011

PATIENT
  Age: 66 Year
  Sex: Female

DRUGS (2)
  1. FORTEO [Suspect]
     Active Substance: TERIPARATIDE
     Indication: OSTEOPOROSIS
     Dosage: 20 UG, QD
     Route: 065
     Dates: start: 201104
  2. FORTEO [Suspect]
     Active Substance: TERIPARATIDE
     Dosage: 20 UG, QD
     Dates: end: 20110615

REACTIONS (8)
  - Injection site pain [Unknown]
  - Nausea [Unknown]
  - Oropharyngeal pain [Unknown]
  - Ear pain [Unknown]
  - Drug dose omission [Unknown]
  - Ear infection [Unknown]
  - Pain [Unknown]
  - Pain in jaw [Recovered/Resolved]

NARRATIVE: CASE EVENT DATE: 20110323
